FAERS Safety Report 4525371-7 (Version None)
Quarter: 2004Q4

REPORT INFORMATION
  Report Type: 
  Country: None (occurrence: None)
  Receive Date: 20041112
  Receipt Date: 20041004
  Transmission Date: 20050328
  Serious: Yes (Other)
  Sender: FDA-Public Use
  Company Number: 2004236731US

PATIENT
  Age: 21 Year
  Sex: Female
  Weight: 79.4 kg

DRUGS (1)
  1. XANAX XR [Suspect]
     Indication: PANIC ATTACK
     Dosage: 1 MG, QD, UNK
     Route: 065
     Dates: start: 20040801

REACTIONS (2)
  - DRUG WITHDRAWAL SYNDROME [None]
  - GRAND MAL CONVULSION [None]
